FAERS Safety Report 19276211 (Version 3)
Quarter: 2021Q2

REPORT INFORMATION
  Report Type: Report from Study
  Country: HU (occurrence: HU)
  Receive Date: 20210519
  Receipt Date: 20210621
  Transmission Date: 20210717
  Serious: Yes (Hospitalization)
  Sender: FDA-Public Use
  Company Number: NVSC2021HU105540

PATIENT
  Age: 62 Year
  Sex: Female
  Weight: 81 kg

DRUGS (2)
  1. TASIGNA [Suspect]
     Active Substance: NILOTINIB
     Indication: CHRONIC MYELOID LEUKAEMIA
  2. TASIGNA [Suspect]
     Active Substance: NILOTINIB
     Indication: PHILADELPHIA CHROMOSOME POSITIVE
     Dosage: 300 MG, BID
     Route: 048
     Dates: start: 20191206, end: 20210330

REACTIONS (1)
  - Acute myocardial infarction [Recovering/Resolving]

NARRATIVE: CASE EVENT DATE: 20210330
